FAERS Safety Report 17545447 (Version 3)
Quarter: 2023Q1

REPORT INFORMATION
  Report Type: Spontaneous
  Country: PL (occurrence: PL)
  Receive Date: 20200316
  Receipt Date: 20230306
  Transmission Date: 20230417
  Serious: Yes (Life-Threatening, Hospitalization, Other)
  Sender: FDA-Public Use
  Company Number: PL-ROCHE-2541695

PATIENT
  Age: 44 Year
  Sex: Male
  Weight: 72 kg

DRUGS (16)
  1. MYCOPHENOLATE MOFETIL [Suspect]
     Active Substance: MYCOPHENOLATE MOFETIL
     Indication: Prophylaxis against transplant rejection
     Dosage: UNK
     Route: 065
     Dates: start: 19990720, end: 20150217
  2. MYCOPHENOLATE MOFETIL [Suspect]
     Active Substance: MYCOPHENOLATE MOFETIL
     Indication: Immunosuppressant drug therapy
     Dosage: UNK
     Route: 065
     Dates: start: 200003
  3. CYCLOSPORINE [Suspect]
     Active Substance: CYCLOSPORINE
     Indication: Prophylaxis against transplant rejection
     Dosage: LEVELS 33.68-56.6 NG/ML
     Route: 065
  4. CYCLOSPORINE [Suspect]
     Active Substance: CYCLOSPORINE
     Indication: Immunosuppressant drug therapy
     Dosage: LEVELS 33.68-56.6 NG/ML (0.5 DAY)
     Route: 065
     Dates: start: 19990720, end: 20151028
  5. CYCLOSPORINE [Suspect]
     Active Substance: CYCLOSPORINE
     Dosage: LEVELS 33.68-56.6 NG/ML (0.5 DAY)
     Route: 065
     Dates: start: 20160103
  6. AZATHIOPRINE [Suspect]
     Active Substance: AZATHIOPRINE
     Indication: Prophylaxis against transplant rejection
     Route: 065
  7. PREDNISONE [Suspect]
     Active Substance: PREDNISONE
     Indication: Prophylaxis against transplant rejection
     Dosage: 1 DOSAGE FORM, QD
     Route: 065
  8. PREDNISONE [Suspect]
     Active Substance: PREDNISONE
     Indication: Immunosuppressant drug therapy
     Dosage: 5 MILLIGRAM, QD
     Route: 065
     Dates: start: 19990722, end: 20031210
  9. PREDNISONE [Suspect]
     Active Substance: PREDNISONE
     Dosage: UNK UNK, QD
     Route: 065
     Dates: start: 20150519
  10. METHYLPREDNISOLONE [Suspect]
     Active Substance: METHYLPREDNISOLONE
     Indication: Prophylaxis against transplant rejection
     Dosage: UNK
     Route: 065
  11. METHYLPREDNISOLONE [Suspect]
     Active Substance: METHYLPREDNISOLONE
     Indication: Immunosuppressant drug therapy
  12. RITUXIMAB [Suspect]
     Active Substance: RITUXIMAB
     Indication: Epstein-Barr virus associated lymphoma
     Dosage: 8 COURSES
     Route: 065
     Dates: start: 201401, end: 201410
  13. VINBLASTINE [Suspect]
     Active Substance: VINBLASTINE
     Indication: Epstein-Barr virus associated lymphoma
     Dosage: 6 COURSES
     Route: 065
     Dates: start: 201401, end: 201410
  14. LEFLUNOMIDE [Suspect]
     Active Substance: LEFLUNOMIDE
     Indication: Prophylaxis against transplant rejection
     Dosage: UNK
     Route: 065
     Dates: start: 201410, end: 201502
  15. DOXORUBICIN [Concomitant]
     Active Substance: DOXORUBICIN
     Indication: Epstein-Barr virus associated lymphoma
     Dosage: 6 COURSES
     Route: 065
     Dates: start: 201401, end: 201410
  16. MEROPENEM [Concomitant]
     Active Substance: MEROPENEM
     Dosage: UNK

REACTIONS (34)
  - Hodgkin^s disease [Unknown]
  - Aortic valve incompetence [Recovered/Resolved]
  - Pulmonary hypertension [Recovered/Resolved]
  - Chronic kidney disease [Recovered/Resolved with Sequelae]
  - Cardiac failure chronic [Recovered/Resolved]
  - Aortic stenosis [Recovered/Resolved]
  - Encephalitis fungal [Unknown]
  - Oral herpes [Recovered/Resolved]
  - Pneumonia [Recovered/Resolved with Sequelae]
  - Staphylococcal sepsis [Recovered/Resolved]
  - Lung abscess [Recovered/Resolved with Sequelae]
  - Cytomegalovirus infection [Unknown]
  - Orthopnoea [Recovered/Resolved]
  - Endocarditis [Recovered/Resolved]
  - Staphylococcal infection [Recovered/Resolved]
  - Chronic allograft nephropathy [Not Recovered/Not Resolved]
  - Emphysema [Recovered/Resolved]
  - Ascites [Recovered/Resolved with Sequelae]
  - Pyrexia [Recovered/Resolved]
  - Cytomegalovirus infection reactivation [Recovered/Resolved]
  - Aortic valve disease mixed [Recovered/Resolved]
  - Bronchitis bacterial [Recovered/Resolved with Sequelae]
  - Hyperkinetic heart syndrome [Recovering/Resolving]
  - Leukocytosis [Recovered/Resolved]
  - Epstein-Barr virus infection [Unknown]
  - Transplant failure [Recovered/Resolved with Sequelae]
  - Pleural effusion [Recovered/Resolved with Sequelae]
  - Epstein-Barr virus associated lymphoma [Unknown]
  - Splenomegaly [Recovered/Resolved]
  - Anaemia [Recovered/Resolved with Sequelae]
  - C-reactive protein increased [Recovered/Resolved]
  - Tachycardia [Recovered/Resolved]
  - Blood bilirubin increased [Recovered/Resolved]
  - Cardiac failure [Recovered/Resolved]

NARRATIVE: CASE EVENT DATE: 20001001
